FAERS Safety Report 13775665 (Version 2)
Quarter: 2017Q3

REPORT INFORMATION
  Report Type: Spontaneous
  Country: KR (occurrence: KR)
  Receive Date: 20170720
  Receipt Date: 20170808
  Transmission Date: 20171127
  Serious: Yes (Death, Hospitalization, Other)
  Sender: FDA-Public Use
  Company Number: KR-GILEAD-2017-0281075

PATIENT
  Age: 59 Year
  Sex: Male
  Weight: 56 kg

DRUGS (4)
  1. VIREAD [Suspect]
     Active Substance: TENOFOVIR DISOPROXIL FUMARATE
     Indication: HEPATITIS B
     Dosage: 300 MG, QD
     Route: 065
     Dates: start: 20150420, end: 201504
  2. FUROSEMIDE. [Concomitant]
     Active Substance: FUROSEMIDE
     Indication: ASCITES
     Dosage: 20 MG, UNK
  3. VIREAD [Suspect]
     Active Substance: TENOFOVIR DISOPROXIL FUMARATE
     Dosage: 300 MG, QOD
     Route: 065
     Dates: start: 201504, end: 20150505
  4. SPIRONOLACTONE. [Concomitant]
     Active Substance: SPIRONOLACTONE
     Indication: ASCITES
     Dosage: 50 MG, QD

REACTIONS (2)
  - Renal failure [Fatal]
  - Lactic acidosis [Fatal]

NARRATIVE: CASE EVENT DATE: 201505
